FAERS Safety Report 20057731 (Version 1)
Quarter: 2021Q4

REPORT INFORMATION
  Report Type: Spontaneous
  Country: US (occurrence: None)
  Receive Date: 20211110
  Receipt Date: 20211110
  Transmission Date: 20220304
  Serious: Yes (Hospitalization)
  Sender: FDA-Public Use
  Company Number: None

PATIENT
  Sex: Female

DRUGS (11)
  1. AMBRISENTAN [Suspect]
     Active Substance: AMBRISENTAN
     Indication: Pulmonary hypertension
     Route: 048
  2. ALBUTEROL AER HFA [Concomitant]
  3. CRYSELLE [Concomitant]
     Active Substance: ETHINYL ESTRADIOL\NORGESTREL
  4. DEPO-PROVERA [Concomitant]
     Active Substance: MEDROXYPROGESTERONE ACETATE
  5. MAGNESIUM [Concomitant]
     Active Substance: MAGNESIUM
  6. PLAVIX [Concomitant]
     Active Substance: CLOPIDOGREL BISULFATE
  7. TADALAFIL [Concomitant]
     Active Substance: TADALAFIL
  8. TORSEMIDE [Concomitant]
     Active Substance: TORSEMIDE
  9. VELETRI [Concomitant]
     Active Substance: EPOPROSTENOL
  10. ZOFRAN [Concomitant]
     Active Substance: ONDANSETRON HYDROCHLORIDE
  11. ZYRTEC ALLGY TAB [Concomitant]

REACTIONS (1)
  - Hospitalisation [None]
